FAERS Safety Report 11589564 (Version 2)
Quarter: 2015Q4

REPORT INFORMATION
  Report Type: Spontaneous
  Country: US (occurrence: US)
  Receive Date: 20151002
  Receipt Date: 20151210
  Transmission Date: 20160304
  Serious: Yes (Other)
  Sender: FDA-Public Use
  Company Number: US-JNJFOC-20150911323

PATIENT
  Age: 15 Year
  Sex: Male

DRUGS (3)
  1. HALOPERIDOL. [Concomitant]
     Active Substance: HALOPERIDOL
     Indication: PRODUCT USED FOR UNKNOWN INDICATION
     Route: 065
  2. RISPERDAL [Suspect]
     Active Substance: RISPERIDONE
     Indication: ATTENTION DEFICIT/HYPERACTIVITY DISORDER
     Route: 048
     Dates: start: 20070224, end: 20080107
  3. RISPERDAL [Suspect]
     Active Substance: RISPERIDONE
     Indication: TOURETTE^S DISORDER
     Route: 048
     Dates: start: 20070224, end: 20080107

REACTIONS (5)
  - Gynaecomastia [Unknown]
  - Product use issue [Unknown]
  - Hyperprolactinaemia [Unknown]
  - Abnormal weight gain [Unknown]
  - Off label use [Unknown]

NARRATIVE: CASE EVENT DATE: 20070224
